FAERS Safety Report 8819379 (Version 1)
Quarter: 2012Q4

REPORT INFORMATION
  Report Type: Spontaneous
  Country: US (occurrence: None)
  Receive Date: 20121003
  Receipt Date: 20121003
  Transmission Date: 20130627
  Serious: Yes (Other)
  Sender: FDA-Public Use
  Company Number: 201209040

PATIENT
  Age: 56 Year
  Sex: Male
  Weight: 68.04 kg

DRUGS (1)
  1. XIAFLEX [Suspect]
     Dosage: 1 in 1 D, Intralesional
     Dates: start: 20120913, end: 20120913

REACTIONS (2)
  - Laceration [None]
  - Procedural complication [None]
